FAERS Safety Report 7572691-8 (Version None)
Quarter: 2011Q2

REPORT INFORMATION
  Report Type: 
  Country: None (occurrence: None)
  Receive Date: 20110627
  Receipt Date: 20110622
  Transmission Date: 20111010
  Serious: Yes (Other)
  Sender: FDA-Public Use
  Company Number: FR-SHIRE-SPV1-2010-01814

PATIENT

DRUGS (2)
  1. ANAGRELIDE HYDROCHLORIDE [Suspect]
     Indication: ESSENTIAL THROMBOCYTHAEMIA
     Dosage: 1 MG, 1X/DAY:QD
     Route: 048
     Dates: start: 20030101
  2. ANAGRELIDE HYDROCHLORIDE [Suspect]
     Dosage: 2 MG, 1X/DAY:QD
     Dates: start: 20070101

REACTIONS (1)
  - MYELOFIBROSIS [None]
